FAERS Safety Report 8535798-4 (Version None)
Quarter: 2012Q3

REPORT INFORMATION
  Report Type: 
  Country: None (occurrence: None)
  Receive Date: 20120725
  Receipt Date: 20120716
  Transmission Date: 20120928
  Serious: Yes (Other)
  Sender: FDA-Public Use
  Company Number: US-JNJFOC-20120707790

PATIENT
  Sex: Female
  Weight: 50.8 kg

DRUGS (4)
  1. FLAGYL [Concomitant]
     Indication: NUTRITIONAL SUPPORT
     Route: 065
     Dates: start: 20120711
  2. REMICADE [Suspect]
     Indication: CROHN'S DISEASE
     Route: 042
     Dates: start: 20120711
  3. CIPROFLOXACIN HCL [Suspect]
     Indication: NUTRITIONAL SUPPORT
     Route: 065
     Dates: start: 20120711
  4. OMEPRAZOLE [Concomitant]
     Indication: ULCER
     Route: 048
     Dates: start: 20120711

REACTIONS (5)
  - ERYTHEMA NODOSUM [None]
  - MALAISE [None]
  - DIARRHOEA [None]
  - ANAEMIA [None]
  - ABDOMINAL PAIN UPPER [None]
